FAERS Safety Report 4863834-5 (Version None)
Quarter: 2005Q4

REPORT INFORMATION
  Report Type: 
  Country: None (occurrence: None)
  Receive Date: 20051222
  Receipt Date: 20051005
  Transmission Date: 20060501
  Serious: No
  Sender: FDA-Public Use
  Company Number: US-GLAXOSMITHKLINE-A0577181A

PATIENT
  Age: 56 Year
  Sex: Female

DRUGS (4)
  1. FLONASE [Suspect]
     Dosage: 1SPR TWICE PER DAY
     Route: 045
     Dates: start: 20021029, end: 20051001
  2. AMARYL [Concomitant]
  3. LIPITOR [Concomitant]
  4. HYDROCHLOROTHIAZIDE [Concomitant]

REACTIONS (1)
  - HEADACHE [None]
